FAERS Safety Report 20168575 (Version 1)
Quarter: 2021Q4

REPORT INFORMATION
  Report Type: Spontaneous
  Country: ES (occurrence: ES)
  Receive Date: 20211210
  Receipt Date: 20211210
  Transmission Date: 20220303
  Serious: Yes (Other)
  Sender: FDA-Public Use
  Company Number: ES-VIWITPHARMA-2021VWTLIT00015

PATIENT
  Age: 63 Year
  Sex: Female

DRUGS (2)
  1. LEVETIRACETAM [Suspect]
     Active Substance: LEVETIRACETAM
     Indication: Tonic clonic movements
     Dosage: BIWEEKLY INCREASE
     Route: 042
  2. LEVETIRACETAM [Suspect]
     Active Substance: LEVETIRACETAM
     Dosage: WITH BIWEEKLY INCREASE, UP TO 1,000 MG EVERY 12 H
     Route: 048

REACTIONS (6)
  - Altered state of consciousness [Recovered/Resolved]
  - Substance-induced psychotic disorder [Recovered/Resolved]
  - Aggression [Recovered/Resolved]
  - Delusion [Recovered/Resolved]
  - Thinking abnormal [Recovered/Resolved]
  - Disorganised speech [Recovered/Resolved]
